FAERS Safety Report 20551004 (Version 2)
Quarter: 2022Q4

REPORT INFORMATION
  Report Type: Report from Study
  Country: FR (occurrence: FR)
  Receive Date: 20220304
  Receipt Date: 20221005
  Transmission Date: 20230112
  Serious: Yes (Other)
  Sender: FDA-Public Use
  Company Number: FR-ALNYLAM PHARMACEUTICALS, INC.-ALN-2020-002518

PATIENT

DRUGS (3)
  1. ONPATTRO [Suspect]
     Active Substance: PATISIRAN SODIUM
     Indication: Amyloidosis
     Dosage: UNK
     Route: 065
  2. VYNDAQEL [Concomitant]
     Active Substance: TAFAMIDIS MEGLUMINE
     Indication: Product used for unknown indication
     Route: 065
  3. FUROSEMIDE [Concomitant]
     Active Substance: FUROSEMIDE
     Indication: Product used for unknown indication
     Route: 065

REACTIONS (9)
  - Cerebrovascular accident [Unknown]
  - Mental disorder [Unknown]
  - Dementia Alzheimer^s type [Unknown]
  - Depression [Unknown]
  - Orthostatic hypotension [Unknown]
  - Wound [Unknown]
  - Fall [Unknown]
  - Pain [Unknown]
  - Product dose omission issue [Unknown]
